FAERS Safety Report 9021708 (Version 1)
Quarter: 2013Q1

REPORT INFORMATION
  Report Type: Spontaneous
  Country: US (occurrence: US)
  Receive Date: 20130119
  Receipt Date: 20130119
  Transmission Date: 20140127
  Serious: No
  Sender: FDA-Public Use
  Company Number: US-ALLERGAN-1204312US

PATIENT
  Age: 53 Year
  Sex: Female

DRUGS (2)
  1. BOTOX? [Suspect]
     Indication: BLEPHAROSPASM
     Dosage: 48 UNITS, SINGLE
     Route: 030
     Dates: start: 20120221, end: 20120221
  2. BOTOX? [Suspect]
     Dosage: UNK
     Route: 030
     Dates: start: 20111220, end: 20111220

REACTIONS (6)
  - Toxicity to various agents [Unknown]
  - Flank pain [Unknown]
  - Blood blister [Unknown]
  - Headache [Unknown]
  - Insomnia [Unknown]
  - Pruritus [Unknown]
